FAERS Safety Report 6795794-4 (Version None)
Quarter: 2010Q2

REPORT INFORMATION
  Report Type: 
  Country: None (occurrence: None)
  Receive Date: 20100625
  Receipt Date: 20100616
  Transmission Date: 20101027
  Serious: Yes (Hospitalization)
  Sender: FDA-Public Use
  Company Number: GXKR2010JP06641

PATIENT
  Age: 67 Year
  Sex: Male
  Weight: 65 kg

DRUGS (1)
  1. AMIODARONE (NGX) [Suspect]
     Indication: VENTRICULAR TACHYCARDIA
     Dosage: 200 MG PER DAY
     Route: 065
     Dates: start: 20030301

REACTIONS (11)
  - AKINESIA [None]
  - ALTERED STATE OF CONSCIOUSNESS [None]
  - ENCEPHALOPATHY [None]
  - FALL [None]
  - GAIT DISTURBANCE [None]
  - HEPATIC CIRRHOSIS [None]
  - HYPERREFLEXIA [None]
  - HYPOKINESIA [None]
  - MUSCLE RIGIDITY [None]
  - PARKINSONISM [None]
  - TREMOR [None]
